FAERS Safety Report 17012533 (Version 2)
Quarter: 2019Q4

REPORT INFORMATION
  Report Type: Spontaneous
  Country: BR (occurrence: BR)
  Receive Date: 20191109
  Receipt Date: 20191127
  Transmission Date: 20200122
  Serious: Yes (Hospitalization, Other)
  Sender: FDA-Public Use
  Company Number: BR-ABBVIE-19P-020-2996180-00

PATIENT
  Sex: Male
  Weight: 15 kg

DRUGS (4)
  1. FRISIUM [Concomitant]
     Active Substance: CLOBAZAM
     Indication: AGITATION
     Dosage: AT NIGHT; TABLET IS SMASHED WITH WATER AND TAKE VIA GASTROSTOMY
     Route: 050
  2. DEPAKENE [Suspect]
     Active Substance: VALPROIC ACID
     Indication: SEIZURE
     Dosage: VIA GASTROSTOMY
     Route: 048
  3. DEPAKENE [Suspect]
     Active Substance: VALPROIC ACID
     Route: 048
  4. DEPAKOTE [Suspect]
     Active Substance: DIVALPROEX SODIUM
     Indication: PRODUCT USED FOR UNKNOWN INDICATION
     Route: 065

REACTIONS (10)
  - Pneumonia [Recovered/Resolved]
  - Gastrostomy [Unknown]
  - Nasopharyngitis [Unknown]
  - Lung disorder [Unknown]
  - Product administration error [Unknown]
  - Wrong technique in product usage process [Unknown]
  - Choking [Unknown]
  - Mastication disorder [Unknown]
  - Aspiration [Unknown]
  - Product use issue [Unknown]
